FAERS Safety Report 4931344-2 (Version None)
Quarter: 2006Q1

REPORT INFORMATION
  Report Type: 
  Country: None (occurrence: None)
  Receive Date: 20060228
  Receipt Date: 20060221
  Transmission Date: 20060701
  Serious: Yes (Death, Hospitalization, Disabling)
  Sender: FDA-Public Use
  Company Number: 219258

PATIENT
  Age: 67 Year
  Sex: Female
  Weight: 78.5 kg

DRUGS (7)
  1. ERLOTINIB (ERLOTINIB) TABLET [Suspect]
     Indication: NON-SMALL CELL LUNG CANCER
     Dosage: 150 MG, QD, ORAL
     Route: 048
     Dates: start: 20050824, end: 20051031
  2. AVASTIN [Suspect]
     Indication: NON-SMALL CELL LUNG CANCER
     Dosage: 1077 MG, Q3W, INTRAVENOUS
     Route: 042
     Dates: start: 20050824, end: 20051005
  3. AVASTIN [Suspect]
  4. AVASTIN [Suspect]
  5. PREDNISONE TAB [Concomitant]
  6. COMBIVENT (ALBUTEROL, ALBUTEROL SULFATE, IPRATROPIUM BROMIDE) [Concomitant]
  7. NORVASC [Concomitant]

REACTIONS (15)
  - BLOOD SODIUM DECREASED [None]
  - BREATH SOUNDS ABNORMAL [None]
  - COUGH [None]
  - CREPITATIONS [None]
  - DILATATION ATRIAL [None]
  - LUNG INFILTRATION [None]
  - MALIGNANT NEOPLASM PROGRESSION [None]
  - NON-SMALL CELL LUNG CANCER [None]
  - ORTHOPNOEA [None]
  - PCO2 INCREASED [None]
  - PULMONARY HYPERTENSION [None]
  - RESPIRATORY RATE INCREASED [None]
  - TRICUSPID VALVE INCOMPETENCE [None]
  - TROPONIN INCREASED [None]
  - VENTRICULAR HYPERTROPHY [None]
